FAERS Safety Report 23395360 (Version 1)
Quarter: 2024Q1

REPORT INFORMATION
  Report Type: Spontaneous
  Country: IN (occurrence: IN)
  Receive Date: 20240112
  Receipt Date: 20240112
  Transmission Date: 20240409
  Serious: Yes (Other)
  Sender: FDA-Public Use
  Company Number: IN-MLMSERVICE-20231229-4746324-1

PATIENT
  Age: 50 Year
  Sex: Male

DRUGS (9)
  1. ETOPOSIDE [Suspect]
     Active Substance: ETOPOSIDE
     Indication: Disease progression
     Dosage: ON DAY-5 TO -2
     Dates: start: 2021
  2. CARMUSTINE [Suspect]
     Active Substance: CARMUSTINE
     Indication: Diffuse large B-cell lymphoma stage IV
     Dosage: ON DAY-6
     Dates: start: 2021
  3. PLERIXAFOR [Suspect]
     Active Substance: PLERIXAFOR
     Indication: Diffuse large B-cell lymphoma stage IV
     Dosage: 5.1X10*6/KG ON DAY 0.
     Dates: start: 2021
  4. MELPHALAN [Suspect]
     Active Substance: MELPHALAN
     Indication: Diffuse large B-cell lymphoma stage IV
     Dosage: ON DAY-1
     Dates: start: 2021
  5. CYTARABINE [Suspect]
     Active Substance: CYTARABINE
     Indication: Disease progression
     Dosage: ON DAY-5 TO -2
     Dates: start: 2021
  6. ETOPOSIDE [Suspect]
     Active Substance: ETOPOSIDE
     Indication: Metastases to liver
     Dosage: ON DAY-5 TO -2
     Dates: start: 2021
  7. CARMUSTINE [Suspect]
     Active Substance: CARMUSTINE
     Indication: Disease progression
     Dosage: ON DAY-6
     Dates: start: 2021
  8. MELPHALAN [Suspect]
     Active Substance: MELPHALAN
     Indication: Disease progression
     Dosage: ON DAY-1
     Dates: start: 2021
  9. CYTARABINE [Suspect]
     Active Substance: CYTARABINE
     Indication: Metastases to liver
     Dosage: ON DAY-5 TO -2
     Dates: start: 2021

REACTIONS (3)
  - Stomatitis [Unknown]
  - Gastrointestinal inflammation [Unknown]
  - Septic shock [Unknown]

NARRATIVE: CASE EVENT DATE: 20210101
